FAERS Safety Report 23329116 (Version 1)
Quarter: 2023Q4

REPORT INFORMATION
  Report Type: Spontaneous
  Country: US (occurrence: US)
  Receive Date: 20231222
  Receipt Date: 20231222
  Transmission Date: 20240110
  Serious: No
  Sender: FDA-Public Use
  Company Number: US-BIOGEN-2022BI01099751

PATIENT
  Sex: Female

DRUGS (7)
  1. TECFIDERA [Suspect]
     Active Substance: DIMETHYL FUMARATE
     Indication: Multiple sclerosis
     Route: 050
     Dates: start: 20201014
  2. VITAMIN D [Concomitant]
     Active Substance: VITAMIN D NOS
     Route: 050
  3. VITAMIN B12 [Concomitant]
     Active Substance: CYANOCOBALAMIN
     Route: 050
  4. GABAPENTIN [Concomitant]
     Active Substance: GABAPENTIN
     Route: 050
  5. ADDERALL [Concomitant]
     Active Substance: AMPHETAMINE ASPARTATE\AMPHETAMINE SULFATE\DEXTROAMPHETAMINE SACCHARATE\DEXTROAMPHETAMINE SULFATE
     Route: 050
  6. METOPROLOL [Concomitant]
     Active Substance: METOPROLOL
     Route: 050
  7. TIZANIDINE [Concomitant]
     Active Substance: TIZANIDINE
     Route: 050

REACTIONS (2)
  - Gastrointestinal disorder [Not Recovered/Not Resolved]
  - Abdominal discomfort [Unknown]
